FAERS Safety Report 11452217 (Version 1)
Quarter: 2015Q3

REPORT INFORMATION
  Report Type: Spontaneous
  Country: US (occurrence: US)
  Receive Date: 20150903
  Receipt Date: 20150903
  Transmission Date: 20151125
  Serious: Yes (Congenital Anomaly, Other)
  Sender: FDA-Public Use
  Company Number: US-APOTEX-2015AP012440

PATIENT
  Sex: Male

DRUGS (1)
  1. PAXIL [Suspect]
     Active Substance: PAROXETINE HYDROCHLORIDE
     Indication: PRODUCT USED FOR UNKNOWN INDICATION
     Dosage: 20 MG, QD
     Route: 064
     Dates: start: 20011104, end: 20020112

REACTIONS (7)
  - Spine malformation [Unknown]
  - Talipes [Unknown]
  - Gait disturbance [Unknown]
  - Congenital hydrocephalus [Unknown]
  - Arnold-Chiari malformation [Unknown]
  - Foetal exposure during pregnancy [Unknown]
  - Meningomyelocele [Unknown]

NARRATIVE: CASE EVENT DATE: 20031013
